FAERS Safety Report 7214869-9 (Version None)
Quarter: 2011Q1

REPORT INFORMATION
  Report Type: 
  Country: None (occurrence: None)
  Receive Date: 20110107
  Receipt Date: 20100414
  Transmission Date: 20110831
  Serious: No
  Sender: FDA-Public Use
  Company Number: A0855011A

PATIENT
  Sex: Male

DRUGS (5)
  1. ASPIRIN [Concomitant]
  2. ATENOLOL [Concomitant]
  3. LOVAZA [Suspect]
     Indication: BLOOD CHOLESTEROL INCREASED
     Dosage: 2CAP TWICE PER DAY
     Route: 048
     Dates: start: 20100101
  4. LIPITOR [Concomitant]
  5. IBUPROFEN [Concomitant]

REACTIONS (2)
  - RASH [None]
  - BACK PAIN [None]
